FAERS Safety Report 23429297 (Version 2)
Quarter: 2024Q1

REPORT INFORMATION
  Report Type: Report from Study
  Country: US (occurrence: US)
  Receive Date: 20240122
  Receipt Date: 20240306
  Transmission Date: 20240410
  Serious: No
  Sender: FDA-Public Use
  Company Number: US-SA-SAC20240118001141

PATIENT
  Age: 62 Year
  Sex: Female

DRUGS (1)
  1. DUPIXENT [Suspect]
     Active Substance: DUPILUMAB
     Indication: Dermatitis atopic
     Dosage: 300 MG, QOW
     Route: 058
     Dates: start: 20230829

REACTIONS (7)
  - Teeth brittle [Unknown]
  - Off label use [Unknown]
  - Ear infection fungal [Unknown]
  - Tympanic membrane perforation [Unknown]
  - Condition aggravated [Unknown]
  - Tooth abscess [Unknown]
  - Condition aggravated [Unknown]
